FAERS Safety Report 4546726-0 (Version None)
Quarter: 2005Q1

REPORT INFORMATION
  Report Type: 
  Country: None (occurrence: None)
  Receive Date: 20050105
  Receipt Date: 20041222
  Transmission Date: 20050727
  Serious: Yes (Death)
  Sender: FDA-Public Use
  Company Number: 2004120544

PATIENT
  Age: 52 Year
  Sex: Female

DRUGS (4)
  1. METHYLPREDNISOLONE SODIUM SUCCINATE POWDER, STERILE (METHYLPREDNISOLON [Suspect]
     Indication: ENGRAFTMENT SYNDROME
     Dosage: 1 MG/KG,
  2. TACROLIMUS (TACROLIMUS) [Suspect]
     Indication: GRAFT VERSUS HOST DISEASE
  3. FLUDARABINE PHOSPHATE [Concomitant]
  4. MELPHALAN (MELPHALAN) [Concomitant]

REACTIONS (6)
  - HAEMORRHAGIC CEREBRAL INFARCTION [None]
  - INTRAVASCULAR PAPILLARY ENDOTHELIAL HYPERPLASIA [None]
  - LOSS OF CONSCIOUSNESS [None]
  - RENAL DISORDER [None]
  - RESTLESSNESS [None]
  - THROMBOTIC MICROANGIOPATHY [None]
